FAERS Safety Report 5330819-4 (Version None)
Quarter: 2007Q2

REPORT INFORMATION
  Report Type: 
  Country: None (occurrence: None)
  Receive Date: 20070518
  Receipt Date: 20070518
  Transmission Date: 20071010
  Serious: No
  Sender: FDA-Public Use
  Company Number: None

PATIENT
  Sex: Female
  Weight: 81.6475 kg

DRUGS (2)
  1. BUPROPION HCL [Suspect]
     Dosage: 200 MG 1 QD PO
     Route: 048
     Dates: start: 20060201
  2. BUPROPION HCL [Suspect]
     Dosage: 200 MG 1 QD PO
     Route: 048
     Dates: start: 20060301

REACTIONS (2)
  - DEPRESSION [None]
  - THERAPEUTIC RESPONSE UNEXPECTED WITH DRUG SUBSTITUTION [None]
